FAERS Safety Report 16535565 (Version 2)
Quarter: 2019Q3

REPORT INFORMATION
  Report Type: Spontaneous
  Country: US (occurrence: US)
  Receive Date: 20190705
  Receipt Date: 20190819
  Transmission Date: 20191004
  Serious: No
  Sender: FDA-Public Use
  Company Number: US-PFIZER INC-2019285261

PATIENT
  Age: 68 Year
  Sex: Female

DRUGS (1)
  1. VFEND [Suspect]
     Active Substance: VORICONAZOLE
     Dosage: UNK

REACTIONS (5)
  - Skin sensitisation [Unknown]
  - Hair texture abnormal [Not Recovered/Not Resolved]
  - Skin discolouration [Unknown]
  - Blister [Unknown]
  - Photosensitivity reaction [Not Recovered/Not Resolved]
